FAERS Safety Report 18160450 (Version 8)
Quarter: 2021Q1

REPORT INFORMATION
  Report Type: Spontaneous
  Country: US (occurrence: US)
  Receive Date: 20200817
  Receipt Date: 20210304
  Transmission Date: 20210419
  Serious: Yes (Other)
  Sender: FDA-Public Use
  Company Number: US-PFIZER INC-2020211229

PATIENT
  Age: 22 Year
  Sex: Female

DRUGS (1)
  1. XELJANZ XR [Suspect]
     Active Substance: TOFACITINIB CITRATE
     Indication: COLITIS ULCERATIVE
     Dosage: 11 MG, 1X/DAY
     Route: 048

REACTIONS (9)
  - Anaemia [Unknown]
  - Iron deficiency [Unknown]
  - Stress [Unknown]
  - Anxiety [Unknown]
  - Diarrhoea [Unknown]
  - Condition aggravated [Unknown]
  - Drug ineffective [Unknown]
  - Haematochezia [Unknown]
  - Decreased immune responsiveness [Unknown]
